FAERS Safety Report 6259936-1 (Version None)
Quarter: 2009Q3

REPORT INFORMATION
  Report Type: 
  Country: None (occurrence: None)
  Receive Date: 20090706
  Receipt Date: 20090622
  Transmission Date: 20100115
  Serious: Yes (Hospitalization)
  Sender: FDA-Public Use
  Company Number: MOZO-1000219

PATIENT
  Age: 39 Year
  Sex: Male
  Weight: 85 kg

DRUGS (2)
  1. MOZOBIL [Suspect]
     Indication: HAEMATOPOIETIC STEM CELL MOBILISATION
     Dosage: 20.4 MG, SUBCUTANEOUS
     Route: 058
  2. G-CSF (GRANULOCYTE COLONY STIMULATING FACTOR) [Suspect]
     Indication: HAEMATOPOIETIC STEM CELL MOBILISATION
     Dosage: 3 ML, Q
     Dates: start: 20090417, end: 20090421

REACTIONS (2)
  - PROCEDURAL COMPLICATION [None]
  - THROMBOCYTOPENIA [None]
